FAERS Safety Report 4422673-X (Version None)
Quarter: 2004Q3

REPORT INFORMATION
  Report Type: 
  Country: None (occurrence: None)
  Receive Date: 20040713
  Receipt Date: 20030402
  Transmission Date: 20050211
  Serious: No
  Sender: FDA-Public Use
  Company Number: PHEH2003US02844

PATIENT
  Age: 45 Year
  Sex: Female
  Weight: 62.1 kg

DRUGS (1)
  1. ELIDEL [Suspect]
     Dosage: TOPICAL
     Route: 061

REACTIONS (1)
  - RESPIRATORY TRACT CONGESTION [None]
